FAERS Safety Report 4873161-8 (Version None)
Quarter: 2005Q4

REPORT INFORMATION
  Report Type: 
  Country: None (occurrence: None)
  Receive Date: 20051201
  Receipt Date: 20050818
  Transmission Date: 20060501
  Serious: No
  Sender: FDA-Public Use
  Company Number: 2005PV001260

PATIENT
  Age: 62 Year
  Sex: Male
  Weight: 87.5442 kg

DRUGS (4)
  1. BYETTA [Suspect]
     Indication: DIABETES MELLITUS NON-INSULIN-DEPENDENT
     Dosage: SEE IMAGE
     Route: 058
     Dates: start: 20050601, end: 20050701
  2. BYETTA [Suspect]
     Indication: DIABETES MELLITUS NON-INSULIN-DEPENDENT
     Dosage: SEE IMAGE
     Route: 058
     Dates: start: 20050701
  3. PRILOSEC [Concomitant]
  4. UNKNOWN DIABETES MEDICATION [Concomitant]

REACTIONS (4)
  - ERUCTATION [None]
  - FLATULENCE [None]
  - INSOMNIA [None]
  - NAUSEA [None]
